FAERS Safety Report 16384529 (Version 3)
Quarter: 2019Q4

REPORT INFORMATION
  Report Type: Report from Study
  Country: RO (occurrence: RO)
  Receive Date: 20190603
  Receipt Date: 20191209
  Transmission Date: 20200122
  Serious: Yes (Other)
  Sender: FDA-Public Use
  Company Number: RO-MYLANLABS-2019M1051212

PATIENT
  Age: 39 Year
  Sex: Female
  Weight: 63 kg

DRUGS (2)
  1. TRASTUZUMAB. [Suspect]
     Active Substance: TRASTUZUMAB
     Dosage: 600 MILLIGRAM
     Route: 058
     Dates: start: 20190128
  2. TRASTUZUMAB. [Suspect]
     Active Substance: TRASTUZUMAB
     Indication: BREAST CANCER
     Dosage: PERFUSION
     Route: 042
     Dates: start: 20180917

REACTIONS (14)
  - Influenza like illness [Recovered/Resolved]
  - Hypersensitivity [Recovered/Resolved]
  - Headache [Recovered/Resolved]
  - Diarrhoea [Recovered/Resolved]
  - Panic attack [Unknown]
  - Memory impairment [Not Recovered/Not Resolved]
  - Alopecia [Not Recovered/Not Resolved]
  - Dizziness [Unknown]
  - Injection site reaction [Unknown]
  - Malaise [Unknown]
  - Pyrexia [Recovered/Resolved]
  - Anaemia [Unknown]
  - Contusion [Unknown]
  - Syncope [Unknown]

NARRATIVE: CASE EVENT DATE: 20180918
